FAERS Safety Report 8371724-9 (Version None)
Quarter: 2012Q2

REPORT INFORMATION
  Report Type: 
  Country: None (occurrence: None)
  Receive Date: 20120518
  Receipt Date: 20120518
  Transmission Date: 20120825
  Serious: No
  Sender: FDA-Public Use
  Company Number: US-ROCHE-1063536

PATIENT
  Sex: Male

DRUGS (1)
  1. XELODA [Suspect]
     Indication: PRODUCT USED FOR UNKNOWN INDICATION

REACTIONS (2)
  - NEOPLASM PROGRESSION [None]
  - DRUG INEFFECTIVE [None]
